FAERS Safety Report 23146316 (Version 2)
Quarter: 2024Q2

REPORT INFORMATION
  Report Type: Report from Study
  Country: US (occurrence: US)
  Receive Date: 20231104
  Receipt Date: 20240529
  Transmission Date: 20240716
  Serious: No
  Sender: FDA-Public Use
  Company Number: US-002147023-NVSC2023US234677

PATIENT
  Sex: Female
  Weight: 95.25 kg

DRUGS (1)
  1. COSENTYX [Suspect]
     Active Substance: SECUKINUMAB
     Indication: Psoriasis
     Dosage: 300 MG, QMO
     Route: 058

REACTIONS (5)
  - Condition aggravated [Unknown]
  - Psoriasis [Unknown]
  - Urticaria [Unknown]
  - Drug ineffective [Unknown]
  - Product dose omission issue [Unknown]
